FAERS Safety Report 5308483-X (Version None)
Quarter: 2007Q2

REPORT INFORMATION
  Report Type: 
  Country: None (occurrence: None)
  Receive Date: 20070424
  Receipt Date: 20070424
  Transmission Date: 20071010
  Serious: Yes (Other)
  Sender: FDA-Public Use
  Company Number: None

PATIENT
  Age: 40 Year
  Sex: Female
  Weight: 68.0396 kg

DRUGS (1)
  1. IRON DEXTRAN [Suspect]
     Indication: SERUM FERRITIN DECREASED
     Dosage: IV
     Route: 042
     Dates: start: 20070315, end: 20070315

REACTIONS (2)
  - INFUSION RELATED REACTION [None]
  - URTICARIA [None]
